FAERS Safety Report 6364458-3 (Version None)
Quarter: 2009Q3

REPORT INFORMATION
  Report Type: 
  Country: None (occurrence: None)
  Receive Date: 20090919
  Receipt Date: 20090723
  Transmission Date: 20100115
  Serious: No
  Sender: FDA-Public Use
  Company Number: US-ABBOTT-09P-163-0587434-00

PATIENT
  Sex: Female
  Weight: 92.616 kg

DRUGS (8)
  1. HUMIRA [Suspect]
     Indication: RHEUMATOID ARTHRITIS
     Route: 058
     Dates: start: 20080101, end: 20090201
  2. TRAMADOL HYDROCHLORIDE AND ACETAMINOPHEN [Concomitant]
     Indication: DRUG USE FOR UNKNOWN INDICATION
     Dosage: 37.5-325
  3. METHIMAZOLE [Concomitant]
     Indication: THYROID DISORDER
  4. SULAR [Concomitant]
     Indication: DRUG USE FOR UNKNOWN INDICATION
  5. CLONAZEPAN [Concomitant]
     Indication: DRUG USE FOR UNKNOWN INDICATION
  6. SEROQUEL [Concomitant]
     Indication: DRUG USE FOR UNKNOWN INDICATION
  7. CYMBALTA [Concomitant]
     Indication: DRUG USE FOR UNKNOWN INDICATION
  8. CYCLOBENZAPRINE [Concomitant]
     Indication: DRUG USE FOR UNKNOWN INDICATION

REACTIONS (2)
  - RASH [None]
  - RASH PAPULAR [None]
